FAERS Safety Report 15135154 (Version 1)
Quarter: 2018Q3

REPORT INFORMATION
  Report Type: Spontaneous
  Country: US (occurrence: US)
  Receive Date: 20180712
  Receipt Date: 20180712
  Transmission Date: 20181010
  Serious: No
  Sender: FDA-Public Use
  Company Number: US-ABBVIE-18P-163-2337250-00

PATIENT
  Sex: Male

DRUGS (5)
  1. VENETOCLAX. [Suspect]
     Active Substance: VENETOCLAX
     Dosage: FOR ONE WEEK ;ONGOING: UNKNOWN
     Route: 048
  2. VENETOCLAX. [Suspect]
     Active Substance: VENETOCLAX
     Dosage: FOR ONE WEEK ;ONGOING: UNKNOWN
     Route: 048
  3. VENETOCLAX. [Suspect]
     Active Substance: VENETOCLAX
     Dosage: FOR ONE WEEK ;ONGOING: UNKNOWN
     Route: 048
  4. VENETOCLAX. [Suspect]
     Active Substance: VENETOCLAX
     Dosage: FOR ONE WEEK ;ONGOING: UNKNOWN
     Route: 048
  5. VENETOCLAX. [Suspect]
     Active Substance: VENETOCLAX
     Indication: CHRONIC LYMPHOCYTIC LEUKAEMIA
     Dosage: FOR ONE WEEK ; ONGOING: UNKNOWN
     Route: 048
     Dates: start: 201803

REACTIONS (1)
  - Herpes zoster [Unknown]
